FAERS Safety Report 8820568 (Version 2)
Quarter: 2012Q4

REPORT INFORMATION
  Report Type: Report from Study
  Country: US (occurrence: US)
  Receive Date: 20121002
  Receipt Date: 20121022
  Transmission Date: 20130627
  Serious: Yes (Hospitalization)
  Sender: FDA-Public Use
  Company Number: US-ACTELION-A-US2012-71860

PATIENT
  Age: 50 Year
  Sex: Female

DRUGS (1)
  1. TRACLEER [Suspect]
     Indication: PULMONARY ARTERIAL HYPERTENSION
     Dosage: UNK
     Route: 048
     Dates: start: 20090223

REACTIONS (4)
  - Localised infection [Not Recovered/Not Resolved]
  - Infection [Not Recovered/Not Resolved]
  - Toe amputation [Not Recovered/Not Resolved]
  - Renal failure chronic [Unknown]
